FAERS Safety Report 22011496 (Version 2)
Quarter: 2023Q2

REPORT INFORMATION
  Report Type: Report from Study
  Country: US (occurrence: US)
  Receive Date: 20230220
  Receipt Date: 20230623
  Transmission Date: 20230722
  Serious: Yes (Hospitalization, Other)
  Sender: FDA-Public Use
  Company Number: US-AURINIA PHARMACEUTICALS INC.-AUR-002869

PATIENT
  Sex: Female
  Weight: 82.358 kg

DRUGS (3)
  1. LUPKYNIS [Suspect]
     Active Substance: VOCLOSPORIN
     Indication: Product used for unknown indication
     Dosage: 23.7 MILLIGRAM, BID
     Route: 048
     Dates: start: 20221108
  2. PREDNISONE [Concomitant]
     Active Substance: PREDNISONE
     Indication: Lupus nephritis
     Dosage: 10 MILLIGRAM, QD
  3. CELLCEPT [Concomitant]
     Active Substance: MYCOPHENOLATE MOFETIL
     Indication: Lupus nephritis
     Dosage: 1.5 GRAM, BID

REACTIONS (13)
  - Disseminated mycobacterium avium complex infection [Unknown]
  - Cytomegalovirus infection [Unknown]
  - Intestinal ulcer [Unknown]
  - Gastric ulcer [Unknown]
  - Coccidioidomycosis [Unknown]
  - Systemic lupus erythematosus [Unknown]
  - Pulmonary mass [Unknown]
  - Upper respiratory tract infection [Recovering/Resolving]
  - Bronchitis [Unknown]
  - Rib fracture [Recovered/Resolved]
  - Anaemia [Unknown]
  - Treatment noncompliance [Unknown]
  - Therapy interrupted [Unknown]
